FAERS Safety Report 8445054 (Version 2)
Quarter: 2012Q4

REPORT INFORMATION
  Report Type: 
  Country: BR (occurrence: BR)
  Receive Date: 20120307
  Receipt Date: 20120903
  Transmission Date: 20130627
  Serious: Yes (Death, Hospitalization)
  Sender: FDA-Public Use
  Company Number: BR-ELI_LILLY_AND_COMPANY-BR201203000603

PATIENT
  Age: 77 Year
  Sex: Male

DRUGS (2)
  1. ALIMTA [Suspect]
     Dosage: 550 mg, unknown
     Route: 065
  2. CISPLATINA [Concomitant]
     Dosage: 75 mg, unknown
     Route: 065

REACTIONS (2)
  - Death [Fatal]
  - Hospitalisation [Unknown]
